FAERS Safety Report 5372477-9 (Version None)
Quarter: 2007Q2

REPORT INFORMATION
  Report Type: 
  Country: None (occurrence: None)
  Receive Date: 20070620
  Receipt Date: 20070425
  Transmission Date: 20071010
  Serious: No
  Sender: FDA-Public Use
  Company Number: 2007RL000187

PATIENT
  Age: 41 Year
  Sex: Male
  Weight: 96.1626 kg

DRUGS (2)
  1. OMACOR [Suspect]
     Indication: DRUG USE FOR UNKNOWN INDICATION
     Dosage: 4 GM; QD; PO
     Route: 048
     Dates: start: 20070418, end: 20070419
  2. ANTARA [Suspect]
     Indication: DRUG USE FOR UNKNOWN INDICATION
     Dates: start: 20070419

REACTIONS (1)
  - RASH [None]
